FAERS Safety Report 7334345-2 (Version None)
Quarter: 2011Q1

REPORT INFORMATION
  Report Type: 
  Country: None (occurrence: None)
  Receive Date: 20110307
  Receipt Date: 20101119
  Transmission Date: 20110831
  Serious: No
  Sender: FDA-Public Use
  Company Number: US-KINGPHARMUSA00001-K201001414

PATIENT
  Age: 58 Year
  Sex: Male
  Weight: 90.703 kg

DRUGS (4)
  1. AMBIEN [Concomitant]
     Indication: INSOMNIA
     Dosage: 10 MG, QHS
     Route: 048
  2. EMBEDA [Suspect]
     Dosage: 50 MG (APPROXIMATELY 1/2 OF 100 MG CAPSULE) QAM
     Route: 048
     Dates: start: 20101118
  3. EMBEDA [Suspect]
     Indication: BACK PAIN
     Dosage: 25 MG (APPROXIMATELY 1/4 OF CONTENTS IN 100 MG CAPSULE)
     Route: 048
     Dates: start: 20101117, end: 20101117
  4. EMBEDA [Suspect]
     Dosage: 75 MG (APPROXIMATELY 3/4 OF 100 MG CAPSULE) QPM
     Route: 048
     Dates: start: 20101118

REACTIONS (6)
  - DRY MOUTH [None]
  - PRURITUS [None]
  - THROAT IRRITATION [None]
  - ORAL PRURITUS [None]
  - WRONG TECHNIQUE IN DRUG USAGE PROCESS [None]
  - RASH GENERALISED [None]
